FAERS Safety Report 6871962-8 (Version None)
Quarter: 2010Q2

REPORT INFORMATION
  Report Type: 
  Country: None (occurrence: None)
  Receive Date: 20100610
  Receipt Date: 20100401
  Transmission Date: 20101027
  Serious: Yes (Other)
  Sender: FDA-Public Use
  Company Number: 2010SP019706

PATIENT
  Age: 39 Year
  Sex: Male

DRUGS (1)
  1. SAPHRIS [Suspect]
     Indication: DRUG USE FOR UNKNOWN INDICATION
     Dates: start: 20100201

REACTIONS (2)
  - DYSPNOEA [None]
  - SWOLLEN TONGUE [None]
